FAERS Safety Report 4556543-3 (Version None)
Quarter: 2005Q1

REPORT INFORMATION
  Report Type: 
  Country: None (occurrence: None)
  Receive Date: 20050114
  Receipt Date: 20041231
  Transmission Date: 20050727
  Serious: Yes (Hospitalization)
  Sender: FDA-Public Use
  Company Number: DSA_25603_2005

PATIENT
  Age: 37 Year
  Sex: Female

DRUGS (2)
  1. LORAZEPAM [Suspect]
     Dosage: DF ONCE PO
     Route: 048
     Dates: start: 20041227, end: 20041227
  2. AMITRIPTYLINE [Suspect]
     Dosage: DF ONCE PO
     Route: 048
     Dates: start: 20041227, end: 20041227

REACTIONS (2)
  - INTENTIONAL MISUSE [None]
  - SINUS TACHYCARDIA [None]
